FAERS Safety Report 20034061 (Version 1)
Quarter: 2021Q4

REPORT INFORMATION
  Report Type: Spontaneous
  Country: GB (occurrence: GB)
  Receive Date: 20211104
  Receipt Date: 20211104
  Transmission Date: 20220303
  Serious: Yes (Other)
  Sender: FDA-Public Use
  Company Number: GB-MYLANLABS-2021M1080705

PATIENT
  Sex: Female

DRUGS (3)
  1. FLECAINIDE [Suspect]
     Active Substance: FLECAINIDE
     Indication: Tachycardia foetal
     Dosage: 100 MILLIGRAM, Q4D
     Route: 048
  2. FLECAINIDE [Suspect]
     Active Substance: FLECAINIDE
     Dosage: DOSE DECREASED
     Route: 048
  3. METOPROLOL [Suspect]
     Active Substance: METOPROLOL
     Indication: Tachycardia foetal
     Dosage: 50 MILLIGRAM, 50 MG THREE TIMES/DAY
     Route: 048

REACTIONS (4)
  - Electrocardiogram PR prolongation [Unknown]
  - Electrocardiogram QT prolonged [Unknown]
  - Maternal exposure during pregnancy [Recovered/Resolved]
  - Normal newborn [Recovered/Resolved]
